FAERS Safety Report 8157545-0 (Version None)
Quarter: 2012Q1

REPORT INFORMATION
  Report Type: 
  Country: None (occurrence: None)
  Receive Date: 20120222
  Receipt Date: 20110516
  Transmission Date: 20120608
  Serious: No
  Sender: FDA-Public Use
  Company Number: US-ASTRAZENECA-2011SE30101

PATIENT

DRUGS (13)
  1. JANVVIA [Concomitant]
  2. ATENOLOL [Suspect]
     Route: 065
  3. LIPITOR [Concomitant]
  4. IMDUR [Concomitant]
  5. LISINOPRIL [Suspect]
     Route: 048
  6. CLOPAMIDE [Suspect]
     Route: 065
  7. NEXIUM [Concomitant]
  8. DOCUSATE CALCIUM [Concomitant]
  9. NITRO TABS [Concomitant]
  10. COZAAR [Concomitant]
  11. PLAVIX [Concomitant]
  12. ASPIRIN [Concomitant]
  13. METFORMIN HCL [Concomitant]

REACTIONS (3)
  - DRUG HYPERSENSITIVITY [None]
  - DIZZINESS [None]
  - COUGH [None]
